FAERS Safety Report 14707708 (Version 1)
Quarter: 2018Q2

REPORT INFORMATION
  Report Type: Spontaneous
  Country: DE (occurrence: DE)
  Receive Date: 20180403
  Receipt Date: 20180403
  Transmission Date: 20180711
  Serious: Yes (Disabling, Other)
  Sender: FDA-Public Use
  Company Number: DE-ORION CORPORATION ORION PHARMA-18_00003310

PATIENT
  Age: 78 Year
  Sex: Female
  Weight: 54 kg

DRUGS (10)
  1. METHOTREXATE (TRADE NAME UNKNOWN) [Suspect]
     Active Substance: METHOTREXATE
     Route: 065
  2. ENBREL [Suspect]
     Active Substance: ETANERCEPT
     Indication: RHEUMATOID ARTHRITIS
     Route: 065
     Dates: start: 2016, end: 2017
  3. ARCOXIA [Concomitant]
     Active Substance: ETORICOXIB
     Indication: OSTEOARTHRITIS
     Route: 065
  4. CERTOLIZUMAB [Suspect]
     Active Substance: CERTOLIZUMAB
     Indication: RHEUMATOID ARTHRITIS
     Route: 065
  5. VITAMIN D [Concomitant]
     Active Substance: CHOLECALCIFEROL
     Route: 065
  6. CALCIUM [Concomitant]
     Active Substance: CALCIUM
     Route: 065
  7. ARCOXIA [Concomitant]
     Active Substance: ETORICOXIB
     Indication: RHEUMATOID ARTHRITIS
     Route: 065
  8. PALEXIA [Concomitant]
     Active Substance: TAPENTADOL HYDROCHLORIDE
     Dosage: IN MORNINGS
     Route: 065
  9. PROLIA [Suspect]
     Active Substance: DENOSUMAB
     Indication: OSTEOPOROSIS
     Dosage: CYCLICAL
     Route: 065
     Dates: start: 201602, end: 201801
  10. PREDNISOLONE. [Concomitant]
     Active Substance: PREDNISOLONE
     Indication: RHEUMATOID ARTHRITIS
     Route: 065
     Dates: start: 201707

REACTIONS (9)
  - Synovectomy [Unknown]
  - Drug ineffective [Unknown]
  - Carotid artery stenosis [Unknown]
  - Nervous system disorder [Unknown]
  - Thoracic vertebral fracture [Not Recovered/Not Resolved]
  - Gastrointestinal disorder [Unknown]
  - Aortic valve stenosis [Unknown]
  - Hyperlipidaemia [Unknown]
  - Lumbar vertebral fracture [Not Recovered/Not Resolved]

NARRATIVE: CASE EVENT DATE: 201704
